FAERS Safety Report 8571011-X (Version None)
Quarter: 2012Q3

REPORT INFORMATION
  Report Type: 
  Country: None (occurrence: None)
  Receive Date: 20120806
  Receipt Date: 20120723
  Transmission Date: 20120928
  Serious: Yes (Hospitalization)
  Sender: FDA-Public Use
  Company Number: US-009507513-1207USA010618

PATIENT

DRUGS (4)
  1. METFORMIN HYDROCHLORIDE [Suspect]
     Dosage: 1000 MG, TID
  2. RAMIPRIL [Suspect]
     Dosage: 10 MG, QD
  3. ZOCOR [Suspect]
     Dosage: 20 MG, QD
  4. ATENOLOL [Suspect]
     Dosage: 50 MG, QD

REACTIONS (8)
  - CONTINUOUS HAEMODIAFILTRATION [None]
  - ELECTROCARDIOGRAM T WAVE PEAKED [None]
  - LACTIC ACIDOSIS [None]
  - FATIGUE [None]
  - DEPRESSED LEVEL OF CONSCIOUSNESS [None]
  - ANION GAP INCREASED [None]
  - RENAL FAILURE ACUTE [None]
  - BLOOD PRESSURE IMMEASURABLE [None]
